FAERS Safety Report 4515239-4 (Version None)
Quarter: 2004Q4

REPORT INFORMATION
  Report Type: 
  Country: None (occurrence: None)
  Receive Date: 20041130
  Receipt Date: 20041130
  Transmission Date: 20050328
  Serious: No
  Sender: FDA-Public Use
  Company Number: None

PATIENT
  Age: 54 Year
  Sex: Male
  Weight: 84.369 kg

DRUGS (1)
  1. METFORMIN HCL [Suspect]
     Indication: DIABETES MELLITUS
     Dosage: 850 MG TID

REACTIONS (4)
  - BLOOD GLUCOSE INCREASED [None]
  - POLLAKIURIA [None]
  - THIRST [None]
  - WEIGHT DECREASED [None]
